FAERS Safety Report 13221420 (Version 1)
Quarter: 2017Q1

REPORT INFORMATION
  Report Type: Other
  Country: US (occurrence: US)
  Receive Date: 20170211
  Receipt Date: 20170211
  Transmission Date: 20170428
  Serious: No
  Sender: FDA-Public Use
  Company Number: US-ACORDA-ACO_130994_2016

PATIENT
  Age: 55 Year
  Sex: Female

DRUGS (2)
  1. AMPYRA [Suspect]
     Active Substance: DALFAMPRIDINE
     Indication: GAIT DISTURBANCE
     Dosage: UNK
     Route: 065
  2. TYSABRI [Suspect]
     Active Substance: NATALIZUMAB
     Indication: MULTIPLE SCLEROSIS
     Dosage: 300 MG, Q 4 WKS
     Route: 042

REACTIONS (11)
  - Mobility decreased [Unknown]
  - Panic reaction [Unknown]
  - Headache [Unknown]
  - Learning disability [Unknown]
  - Eye disorder [Unknown]
  - Memory impairment [Unknown]
  - Stress [Unknown]
  - Anxiety [Unknown]
  - Confusional state [Unknown]
  - Gait disturbance [Unknown]
  - Influenza [Unknown]
